FAERS Safety Report 10189358 (Version 7)
Quarter: 2015Q1

REPORT INFORMATION
  Report Type: Spontaneous
  Country: US (occurrence: US)
  Receive Date: 20140522
  Receipt Date: 20150109
  Transmission Date: 20150720
  Serious: Yes (Death, Other)
  Sender: FDA-Public Use
  Company Number: US-009507513-1405USA009981

PATIENT
  Sex: Male
  Weight: 68.27 kg

DRUGS (2)
  1. JANUMET [Suspect]
     Active Substance: METFORMIN HYDROCHLORIDE\SITAGLIPTIN PHOSPHATE
     Indication: TYPE 2 DIABETES MELLITUS
     Dosage: 50/1000 MG, BID
     Route: 048
     Dates: start: 20120921
  2. JANUVIA [Suspect]
     Active Substance: SITAGLIPTIN PHOSPHATE
     Indication: TYPE 2 DIABETES MELLITUS
     Dosage: 100 MG, QD
     Route: 048
     Dates: start: 20120309, end: 20120821

REACTIONS (24)
  - Knee operation [Unknown]
  - Pancreatic carcinoma metastatic [Fatal]
  - Metastases to peritoneum [Unknown]
  - Osteonecrosis [Unknown]
  - Vitamin D deficiency [Unknown]
  - Nephropathy [Unknown]
  - Otitis media acute [Unknown]
  - Insomnia [Unknown]
  - Nephrolithiasis [Unknown]
  - Eye disorder [Unknown]
  - Back pain [Unknown]
  - Arthroscopy [Unknown]
  - Thyroid function test abnormal [Unknown]
  - Hepatic cyst [Unknown]
  - Cholelithiasis [Unknown]
  - Dyspepsia [Unknown]
  - Arthralgia [Unknown]
  - Pain in extremity [Unknown]
  - Family stress [Unknown]
  - Sciatica [Not Recovered/Not Resolved]
  - Erectile dysfunction [Unknown]
  - Lithotripsy [Unknown]
  - Pain [Unknown]
  - Osteoarthritis [Unknown]

NARRATIVE: CASE EVENT DATE: 2012
